FAERS Safety Report 6435906-5 (Version None)
Quarter: 2009Q4

REPORT INFORMATION
  Report Type: 
  Country: None (occurrence: None)
  Receive Date: 20091111
  Receipt Date: 20091029
  Transmission Date: 20100525
  Serious: Yes (Other)
  Sender: FDA-Public Use
  Company Number: US-ELI_LILLY_AND_COMPANY-US200911000546

PATIENT
  Sex: Male

DRUGS (1)
  1. PROZAC [Suspect]
     Dosage: 60 MG, EACH MORNING
     Route: 065

REACTIONS (4)
  - DEPRESSION [None]
  - HALLUCINATION [None]
  - PANIC ATTACK [None]
  - SUBSTANCE ABUSE [None]
